FAERS Safety Report 5922991-X (Version None)
Quarter: 2008Q4

REPORT INFORMATION
  Report Type: 
  Country: None (occurrence: None)
  Receive Date: 20081018
  Receipt Date: 20081007
  Transmission Date: 20090506
  Serious: Yes (Other)
  Sender: FDA-Public Use
  Company Number: ES-PFIZER INC-2008061481

PATIENT
  Age: 56 Year
  Sex: Female

DRUGS (3)
  1. CHAMPIX [Suspect]
     Indication: TOBACCO ABUSE
     Route: 048
     Dates: start: 20080612, end: 20080620
  2. AMILORIDE HCL AND HYDROCHLOROTHIAZIDE [Concomitant]
     Route: 048
  3. CLORAZEPATE DIPOTASSIUM [Concomitant]
     Route: 048

REACTIONS (4)
  - DEPRESSED MOOD [None]
  - DYSPHORIA [None]
  - SUICIDAL IDEATION [None]
  - SUICIDE ATTEMPT [None]
